FAERS Safety Report 23946080 (Version 1)
Quarter: 2024Q2

REPORT INFORMATION
  Report Type: Spontaneous
  Country: US (occurrence: None)
  Receive Date: 20240605
  Receipt Date: 20240605
  Transmission Date: 20240716
  Serious: No
  Sender: FDA-Public Use
  Company Number: None

PATIENT
  Age: 80 Year
  Sex: Male

DRUGS (8)
  1. XDEMVY [Suspect]
     Active Substance: LOTILANER
  2. AMLODIPINE BESYLATE [Concomitant]
     Active Substance: AMLODIPINE BESYLATE
  3. LOSARTAN [Concomitant]
     Active Substance: LOSARTAN
  4. SIMVASTATIN [Concomitant]
     Active Substance: SIMVASTATIN
  5. SPRIONOLACTONE [Concomitant]
  6. *AUTOLOGOUS SERUM EYE DROPS 50% [Concomitant]
  7. DOXYCYCLINE [Concomitant]
     Active Substance: DOXYCYCLINE\DOXYCYCLINE HYCLATE
  8. OCUSOFT LID SCRUB CLNR [Concomitant]

REACTIONS (2)
  - Dizziness [None]
  - Fall [None]

NARRATIVE: CASE EVENT DATE: 20240520
